FAERS Safety Report 20788169 (Version 1)
Quarter: 2022Q2

REPORT INFORMATION
  Report Type: Spontaneous
  Country: FR (occurrence: FR)
  Receive Date: 20220505
  Receipt Date: 20220505
  Transmission Date: 20220721
  Serious: Yes (Hospitalization, Other)
  Sender: FDA-Public Use
  Company Number: None

PATIENT
  Age: 49 Year
  Sex: Female
  Weight: 101 kg

DRUGS (31)
  1. HEPARIN CALCIUM [Suspect]
     Active Substance: HEPARIN CALCIUM
     Indication: Thrombosis prophylaxis
     Dosage: 0.4 ML, DAILY TOTAL DOSE: 2 ML (DUE TO DIFFERENT UNITS IN THERAPY DATA)
     Route: 058
     Dates: start: 20200918, end: 20200922
  2. HEPARIN CALCIUM [Suspect]
     Active Substance: HEPARIN CALCIUM
     Dosage: 0.4 ML, DAILY
     Route: 058
     Dates: start: 20201022, end: 20201105
  3. LOVENOX [Suspect]
     Active Substance: ENOXAPARIN SODIUM
     Indication: Thrombosis prophylaxis
     Dosage: 0.8 ML, DAILY
     Route: 058
     Dates: start: 20200923, end: 20201022
  4. PANTOPRAZOLE [Suspect]
     Active Substance: PANTOPRAZOLE
     Indication: Product used for unknown indication
     Dosage: 40 MG, DAILY
     Route: 048
     Dates: start: 20200924, end: 202011
  5. VANCOMYCIN [Suspect]
     Active Substance: VANCOMYCIN
     Indication: Septic shock
     Dosage: 30 MG/KG, DAILY
     Route: 042
     Dates: start: 20200917, end: 20200918
  6. VANCOMYCIN [Suspect]
     Active Substance: VANCOMYCIN
     Dosage: 3 G, DAILY
     Route: 042
     Dates: start: 20200927, end: 20200930
  7. VANCOMYCIN [Suspect]
     Active Substance: VANCOMYCIN
     Dosage: 1.5 G, BID
     Route: 042
     Dates: start: 20200930, end: 20201009
  8. VANCOMYCIN [Suspect]
     Active Substance: VANCOMYCIN
     Dosage: 1 G, BID
     Route: 042
     Dates: start: 20201009, end: 20201027
  9. VENLAFAXINE [Concomitant]
     Active Substance: VENLAFAXINE HYDROCHLORIDE
     Dosage: 75 MG, DAILY (0-0-1)
     Route: 065
  10. ELETRIPTAN [Concomitant]
     Active Substance: ELETRIPTAN
     Indication: Migraine
     Dosage: 40 MG
     Route: 065
  11. METOPROLOL [Concomitant]
     Active Substance: METOPROLOL
     Dosage: 200 MG, DAILY, (1-0-0)
     Route: 065
  12. STRIADYNE [Concomitant]
     Route: 065
  13. DILTIAZEM HYDROCHLORIDE [Concomitant]
     Active Substance: DILTIAZEM HYDROCHLORIDE
     Route: 065
  14. FUROSEMIDE [Concomitant]
     Active Substance: FUROSEMIDE
     Route: 065
  15. ACETAMINOPHEN [Concomitant]
     Active Substance: ACETAMINOPHEN
     Route: 065
  16. MORPHINE [Concomitant]
     Active Substance: MORPHINE
     Route: 065
  17. NOREPINEPHRINE [Concomitant]
     Active Substance: NOREPINEPHRINE
     Route: 065
  18. CEFOTAXIME [Concomitant]
     Active Substance: CEFOTAXIME SODIUM
     Indication: Antibiotic therapy
     Dosage: 2 G, Q8HR
     Route: 042
     Dates: start: 20200916, end: 20200918
  19. METRONIDAZOLE [Concomitant]
     Active Substance: METRONIDAZOLE
     Indication: Antibiotic therapy
     Dosage: 500 MG, Q8HR
     Route: 042
     Dates: start: 20200916, end: 20200918
  20. AMIKACIN [Concomitant]
     Active Substance: AMIKACIN
     Indication: Antibiotic therapy
     Dosage: 3600 MG, DAILY
     Route: 065
     Dates: start: 20200916, end: 20200918
  21. CEFAZOLIN [Concomitant]
     Active Substance: CEFAZOLIN
     Indication: Antibiotic therapy
     Dosage: 1 G, Q6HR
     Route: 042
     Dates: start: 20200917, end: 20200922
  22. CEFAZOLIN [Concomitant]
     Active Substance: CEFAZOLIN
     Route: 065
     Dates: end: 20200927
  23. CLINDAMYCIN [Concomitant]
     Active Substance: CLINDAMYCIN
     Indication: Antibiotic therapy
     Dosage: 600 MG, Q6HR
     Route: 042
     Dates: start: 20200918, end: 20200922
  24. CLINDAMYCIN [Concomitant]
     Active Substance: CLINDAMYCIN
     Route: 065
     Dates: end: 20200925
  25. LEVOFLOXACIN [Concomitant]
     Active Substance: LEVOFLOXACIN
     Indication: Antibiotic therapy
     Dosage: 500 MG, BID (MORNING AND EVENING )
     Route: 048
     Dates: start: 20200925
  26. RIFAMPIN [Concomitant]
     Active Substance: RIFAMPIN
     Indication: Antibiotic therapy
     Route: 065
  27. ULTRAVIST [Concomitant]
     Active Substance: IOPROMIDE
     Indication: Computerised tomogram
     Route: 065
     Dates: start: 20200919
  28. IOBITRIDOL [Concomitant]
     Active Substance: IOBITRIDOL
     Indication: Computerised tomogram
     Route: 065
     Dates: start: 20200923
  29. CLARISCAN [Concomitant]
     Active Substance: GADOTERATE MEGLUMINE
     Indication: Magnetic resonance imaging
     Route: 065
     Dates: start: 20200924
  30. GADOBUTROL [Concomitant]
     Active Substance: GADOBUTROL
     Indication: Magnetic resonance imaging
     Route: 065
     Dates: start: 20200928
  31. GADOBUTROL [Concomitant]
     Active Substance: GADOBUTROL
     Route: 065
     Dates: start: 20201005

REACTIONS (2)
  - Erythema multiforme [Recovered/Resolved]
  - Eosinophilia [Recovered/Resolved]

NARRATIVE: CASE EVENT DATE: 20200926
